FAERS Safety Report 7089214-2 (Version None)
Quarter: 2010Q4

REPORT INFORMATION
  Report Type: 
  Country: None (occurrence: None)
  Receive Date: 20101029
  Receipt Date: 20101020
  Transmission Date: 20110411
  Serious: Yes (Hospitalization, Other)
  Sender: FDA-Public Use
  Company Number: 2010JP006115

PATIENT
  Age: 46 Year
  Sex: Female

DRUGS (8)
  1. TACROLIMUS [Suspect]
     Indication: LIVER TRANSPLANT
  2. RITUXAN (RITUXIMAB) FORMULATION UNKNOWN [Concomitant]
  3. SOLU-MEDROL [Concomitant]
  4. PGE 1 (ALPROSTADIL) INJECTION [Concomitant]
  5. FUTHAN (NAFAMOSTAT MESILATE) FORMULATION UNKNOWN [Concomitant]
  6. PREDNISOLONE [Concomitant]
  7. CELLCEPT [Concomitant]
  8. TAMIFLU (OSELTAMIVIR) PER ORAL NOS [Concomitant]

REACTIONS (9)
  - ALTERED STATE OF CONSCIOUSNESS [None]
  - CIRCULATORY COLLAPSE [None]
  - INFLUENZA A VIRUS TEST POSITIVE [None]
  - PNEUMONIA [None]
  - PNEUMONIA BACTERIAL [None]
  - PNEUMONIA INFLUENZAL [None]
  - RENAL FAILURE ACUTE [None]
  - SHOCK [None]
  - WHITE BLOOD CELL COUNT DECREASED [None]
